FAERS Safety Report 4475422-3 (Version None)
Quarter: 2004Q4

REPORT INFORMATION
  Report Type: 
  Country: None (occurrence: None)
  Receive Date: 20041014
  Receipt Date: 20041014
  Transmission Date: 20050328
  Serious: Yes (Life-Threatening, Hospitalization)
  Sender: FDA-Public Use
  Company Number: None

PATIENT
  Age: 47 Year
  Sex: Male
  Weight: 88.9 kg

DRUGS (1)
  1. CEFTRIAXONE SODIUM [Suspect]
     Indication: CELLULITIS
     Dosage: 2 G IV X 1
     Route: 042
     Dates: start: 20040913

REACTIONS (3)
  - BLOOD PRESSURE DECREASED [None]
  - HYPERHIDROSIS [None]
  - SKIN DISCOLOURATION [None]
